FAERS Safety Report 24768151 (Version 1)
Quarter: 2024Q4

REPORT INFORMATION
  Report Type: Other
  Country: US (occurrence: US)
  Receive Date: 20241223
  Receipt Date: 20241223
  Transmission Date: 20250114
  Serious: Yes (Other)
  Sender: B BRAUN
  Company Number: US-B.Braun Medical Inc.-2167681

PATIENT

DRUGS (3)
  1. BUPIVACAINE HYDROCHLORIDE [Suspect]
     Active Substance: BUPIVACAINE HYDROCHLORIDE
     Indication: Back pain
  2. HYDROMORPHONE [Suspect]
     Active Substance: HYDROMORPHONE
  3. FENTANYL [Suspect]
     Active Substance: FENTANYL

REACTIONS (2)
  - Catheter site granuloma [Unknown]
  - Off label use [Unknown]
